FAERS Safety Report 8514681-4 (Version None)
Quarter: 2012Q3

REPORT INFORMATION
  Report Type: 
  Country: None (occurrence: None)
  Receive Date: 20120717
  Receipt Date: 20120704
  Transmission Date: 20120928
  Serious: Yes (Hospitalization)
  Sender: FDA-Public Use
  Company Number: US-ACTELION-A-NJ2012-68319

PATIENT

DRUGS (3)
  1. LASIX [Concomitant]
  2. COUMADIN [Concomitant]
  3. TRACLEER [Suspect]
     Indication: PULMONARY ARTERIAL HYPERTENSION
     Dosage: UNK
     Route: 048

REACTIONS (5)
  - OEDEMA PERIPHERAL [None]
  - DIABETES MELLITUS [None]
  - DYSPNOEA [None]
  - CEREBROVASCULAR ACCIDENT [None]
  - OEDEMA [None]
